FAERS Safety Report 8973659 (Version 1)
Quarter: 2012Q4

REPORT INFORMATION
  Report Type: 
  Country: US (occurrence: US)
  Receive Date: 20121218
  Receipt Date: 20121218
  Transmission Date: 20130627
  Serious: Yes (Hospitalization)
  Sender: FDA-Public Use
  Company Number: US-BRISTOL-MYERS SQUIBB COMPANY-16910499

PATIENT
  Age: 54 Year
  Sex: Female
  Weight: 54.42 kg

DRUGS (8)
  1. ABILIFY TABS 5 MG [Suspect]
     Indication: MOOD SWINGS
     Route: 048
     Dates: start: 20090120, end: 20090924
  2. ABILIFY TABS 5 MG [Suspect]
     Indication: DEPRESSION
     Route: 048
     Dates: start: 20090120, end: 20090924
  3. ABILIFY TABS 5 MG [Suspect]
     Indication: PARANOIA
     Route: 048
     Dates: start: 20090120, end: 20090924
  4. CYMBALTA [Suspect]
     Dosage: till 17-Aug-2009
restarted on 01-Jun-2010
     Dates: start: 20060526
  5. AMBIEN [Suspect]
     Dates: start: 20080206, end: 20090817
  6. TRAZODONE HCL [Suspect]
     Dates: start: 20050506
  7. MVI [Concomitant]
     Route: 048
     Dates: start: 20051004, end: 20071204
  8. HYDROCHLOROTHIAZIDE [Concomitant]
     Indication: HYPERTENSION

REACTIONS (6)
  - Blood glucose increased [Unknown]
  - Syncope [Unknown]
  - Dyskinesia [Unknown]
  - Dysphagia [Unknown]
  - Muscle spasms [Unknown]
  - Dizziness [Unknown]
